FAERS Safety Report 23335060 (Version 1)
Quarter: 2023Q4

REPORT INFORMATION
  Report Type: Other
  Country: US (occurrence: None)
  Receive Date: 20231225
  Receipt Date: 20231225
  Transmission Date: 20240110
  Serious: No
  Sender: FDA-Public Use
  Company Number: US-ROCHE-3479428

PATIENT
  Age: 57 Year
  Sex: Female
  Weight: 79.4 kg

DRUGS (11)
  1. OCREVUS [Suspect]
     Active Substance: OCRELIZUMAB
     Indication: Relapsing multiple sclerosis
     Dosage: DATE OF TREATMENT: 11/JUN/2020 AND 11/DEC/2020
     Route: 042
     Dates: start: 20180607
  2. BACLOFEN [Concomitant]
     Active Substance: BACLOFEN
  3. ESTRADIOL [Concomitant]
     Active Substance: ESTRADIOL
  4. FLUOXETINE [Concomitant]
     Active Substance: FLUOXETINE HYDROCHLORIDE
  5. FROVATRIPTAN [Concomitant]
     Active Substance: FROVATRIPTAN
  6. LORAZEPAM [Concomitant]
     Active Substance: LORAZEPAM
  7. MELOXICAM [Concomitant]
     Active Substance: MELOXICAM
  8. MODAFINIL [Concomitant]
     Active Substance: MODAFINIL
  9. NORTRIPTYLINE [Concomitant]
     Active Substance: NORTRIPTYLINE
  10. TIZANIDINE [Concomitant]
     Active Substance: TIZANIDINE
  11. VITAMIN D2 [Concomitant]
     Active Substance: ERGOCALCIFEROL

REACTIONS (2)
  - COVID-19 [Recovering/Resolving]
  - Immunodeficiency [Recovering/Resolving]

NARRATIVE: CASE EVENT DATE: 20231021
